FAERS Safety Report 23663614 (Version 1)
Quarter: 2024Q1

REPORT INFORMATION
  Report Type: Spontaneous
  Country: US (occurrence: US)
  Receive Date: 20240322
  Receipt Date: 20240322
  Transmission Date: 20240410
  Serious: No
  Sender: FDA-Public Use
  Company Number: US-BAYER-2024A042280

PATIENT
  Age: 27 Year
  Sex: Female

DRUGS (1)
  1. SKYLA [Suspect]
     Active Substance: LEVONORGESTREL
     Indication: Contraception
     Dosage: 14?G/DAY
     Route: 015
     Dates: start: 20240115

REACTIONS (4)
  - Abdominal pain lower [None]
  - Genital haemorrhage [None]
  - White blood cell count increased [None]
  - Pyrexia [None]

NARRATIVE: CASE EVENT DATE: 20240215
